FAERS Safety Report 8329274-1 (Version None)
Quarter: 2012Q2

REPORT INFORMATION
  Report Type: 
  Country: None (occurrence: None)
  Receive Date: 20120502
  Receipt Date: 20111212
  Transmission Date: 20120825
  Serious: No
  Sender: FDA-Public Use
  Company Number: US-ASTRAZENECA-2011SE66573

PATIENT
  Age: 46 Year
  Sex: Male
  Weight: 65.8 kg

DRUGS (3)
  1. FASLODEX [Suspect]
     Indication: BREAST CANCER
     Route: 030
     Dates: start: 20110720
  2. FASLODEX [Suspect]
     Route: 030
     Dates: start: 20110720
  3. IMMUNOSUPPRESSANT [Concomitant]

REACTIONS (9)
  - MUSCULOSKELETAL PAIN [None]
  - ANXIETY [None]
  - CHILLS [None]
  - INSOMNIA [None]
  - VOMITING [None]
  - NAUSEA [None]
  - MYALGIA [None]
  - DRUG PRESCRIBING ERROR [None]
  - ARTHRALGIA [None]
